FAERS Safety Report 22053069 (Version 2)
Quarter: 2023Q1

REPORT INFORMATION
  Report Type: Spontaneous
  Country: CN (occurrence: CN)
  Receive Date: 20230302
  Receipt Date: 20230306
  Transmission Date: 20230417
  Serious: Yes (Other)
  Sender: FDA-Public Use
  Company Number: CN-BRISTOL-MYERS SQUIBB COMPANY-2023-029569

PATIENT
  Age: 51 Year
  Sex: Male
  Weight: 70 kg

DRUGS (3)
  1. OPDIVO [Suspect]
     Active Substance: NIVOLUMAB
     Indication: Pancreatic carcinoma
     Dosage: DOSE : 200 MG;     FREQ : D1?INJECTION 200 MG VIA INTRAVENOUS DRIP
     Route: 041
     Dates: start: 20230130, end: 20230130
  2. PACLITAXEL [Suspect]
     Active Substance: PACLITAXEL
     Indication: Pancreatic carcinoma
     Dosage: DOSE : 200 MG;     FREQ : D1?INJECTION 200 MG VIA INTRAVENOUS DRIP
     Route: 041
     Dates: start: 20230130, end: 20230130
  3. GEMCITABINE HYDROCHLORIDE [Suspect]
     Active Substance: GEMCITABINE HYDROCHLORIDE
     Indication: Pancreatic carcinoma
     Dosage: DOSE : 200 MG;     FREQ : D1?INJECTION 200 MG VIA INTRAVENOUS DRIP
     Route: 041
     Dates: start: 20230130, end: 20230130

REACTIONS (2)
  - Myelosuppression [Recovering/Resolving]
  - Off label use [Unknown]

NARRATIVE: CASE EVENT DATE: 20230211
